FAERS Safety Report 21800351 (Version 1)
Quarter: 2022Q4

REPORT INFORMATION
  Report Type: Report from Study
  Country: US (occurrence: US)
  Receive Date: 20221230
  Receipt Date: 20221230
  Transmission Date: 20230113
  Serious: No
  Sender: FDA-Public Use
  Company Number: US-BIOVITRUM-2022US12795

PATIENT
  Sex: Female

DRUGS (1)
  1. KINERET [Suspect]
     Active Substance: ANAKINRA
     Indication: Rheumatoid arthritis
     Dates: start: 20221104

REACTIONS (22)
  - Adverse drug reaction [Unknown]
  - Hypoaesthesia [Unknown]
  - Pain in extremity [Unknown]
  - Arthralgia [Unknown]
  - Hand deformity [Unknown]
  - Mass [Unknown]
  - Erythema [Unknown]
  - Peripheral swelling [Unknown]
  - Carpal tunnel syndrome [Unknown]
  - Wheezing [Unknown]
  - Cough [Unknown]
  - Asthma [Unknown]
  - Swelling [Unknown]
  - Dyspnoea [Unknown]
  - Injection site pain [Unknown]
  - Injection site swelling [Unknown]
  - Injection site warmth [Unknown]
  - Injection site pruritus [Unknown]
  - Pruritus [Unknown]
  - Product dose omission issue [Unknown]
  - Product use complaint [Unknown]
  - Underdose [Unknown]
